FAERS Safety Report 18690406 (Version 1)
Quarter: 2021Q1

REPORT INFORMATION
  Report Type: Other
  Country: US (occurrence: US)
  Receive Date: 20210101
  Receipt Date: 20210101
  Transmission Date: 20210419
  Serious: No
  Sender: FDA-Public Use
  Company Number: US-ROCHE-2742144

PATIENT
  Sex: Female

DRUGS (7)
  1. SOLU?MEDROL [Concomitant]
     Active Substance: METHYLPREDNISOLONE SODIUM SUCCINATE
     Dosage: 125 MG IV 30 MINUTES PRIOR TO INFUSION .
     Route: 042
  2. TYLENOL [Concomitant]
     Active Substance: ACETAMINOPHEN
     Dosage: 500 MG PO PATIENT TO TAKE AT HOME MORNING OF INFUSION
     Route: 048
  3. ZYRTEC (UNITED STATES) [Concomitant]
     Dosage: PATIENT IS TO TAKE AT HOME MORNING OF INFUSION
     Route: 048
  4. OCREVUS [Suspect]
     Active Substance: OCRELIZUMAB
     Indication: MULTIPLE SCLEROSIS
     Dosage: 300MG IV IN 250ML OF NS INFUSE OVER 2.5 HOURS OR LONGER THEN 600MG IV IN 500 ML OF NS Q6 MONTHS?ON 2
     Route: 042
     Dates: start: 20180611
  5. BENADRYL [Concomitant]
     Active Substance: DIPHENHYDRAMINE HYDROCHLORIDE
     Dosage: 25 MG PO PATIENT TO TAKE AT HOME MORNING OF INFUSION
     Route: 048
  6. VISTARIL [Concomitant]
     Active Substance: HYDROXYZINE PAMOATE
     Dosage: 25 MG IM Q 4 HRS PRN
     Route: 030
  7. FAMOTIDINE. [Concomitant]
     Active Substance: FAMOTIDINE
     Dosage: PATIENT IS TO TAKE AT HOME MORNING OF INFUSION
     Route: 048

REACTIONS (1)
  - COVID-19 [Unknown]
